FAERS Safety Report 6527191-0 (Version None)
Quarter: 2010Q1

REPORT INFORMATION
  Report Type: 
  Country: None (occurrence: None)
  Receive Date: 20100105
  Receipt Date: 20091229
  Transmission Date: 20100710
  Serious: Yes (Other)
  Sender: FDA-Public Use
  Company Number: B0621650A

PATIENT
  Age: 40 Year
  Sex: Male

DRUGS (4)
  1. RITONAVIR [Suspect]
     Indication: ANTIRETROVIRAL THERAPY
  2. REYATAZ [Suspect]
     Indication: ANTIRETROVIRAL THERAPY
  3. COMBIVIR [Suspect]
     Indication: ANTIRETROVIRAL THERAPY
  4. SILYBUM MARIANUM [Suspect]
     Dates: start: 20080101, end: 20090701

REACTIONS (1)
  - JAUNDICE [None]
